FAERS Safety Report 15741824 (Version 1)
Quarter: 2018Q4

REPORT INFORMATION
  Report Type: Spontaneous
  Country: US (occurrence: US)
  Receive Date: 20181219
  Receipt Date: 20181219
  Transmission Date: 20190205
  Serious: Yes (Other)
  Sender: FDA-Public Use
  Company Number: US-NOVOPROD-638060

PATIENT
  Sex: Female

DRUGS (1)
  1. TRESIBA [Suspect]
     Active Substance: INSULIN DEGLUDEC
     Indication: TYPE 2 DIABETES MELLITUS
     Dosage: 10 U, UNK
     Route: 058
     Dates: start: 20181125

REACTIONS (6)
  - Pruritus [Recovered/Resolved]
  - Bronchitis [Recovered/Resolved]
  - Joint swelling [Recovered/Resolved]
  - Blood glucose increased [Not Recovered/Not Resolved]
  - Injection site haemorrhage [Recovered/Resolved]
  - Escherichia infection [Recovered/Resolved]

NARRATIVE: CASE EVENT DATE: 201811
